FAERS Safety Report 13355833 (Version 1)
Quarter: 2017Q1

REPORT INFORMATION
  Report Type: Spontaneous
  Country: DE (occurrence: DE)
  Receive Date: 20170321
  Receipt Date: 20170321
  Transmission Date: 20170429
  Serious: Yes (Disabling)
  Sender: FDA-Public Use
  Company Number: DE-GILEAD-2017-0263322

PATIENT
  Age: 84 Year
  Sex: Female
  Weight: 65 kg

DRUGS (1)
  1. RANOLAZINE [Suspect]
     Active Substance: RANOLAZINE
     Indication: PRODUCT USED FOR UNKNOWN INDICATION
     Route: 048
     Dates: start: 20170207, end: 20170215

REACTIONS (16)
  - Hyperhidrosis [Unknown]
  - Pruritus [Unknown]
  - Urticaria [Unknown]
  - Balance disorder [Unknown]
  - Asthenia [Unknown]
  - Dehydration [Unknown]
  - Hypoacusis [Unknown]
  - Swollen tongue [Unknown]
  - Sleep disorder [Unknown]
  - Hypoaesthesia oral [Unknown]
  - Throat tightness [Unknown]
  - Visual impairment [Unknown]
  - Dysphagia [Unknown]
  - Constipation [Unknown]
  - Cough [Unknown]
  - Decreased appetite [Unknown]
